FAERS Safety Report 23854906 (Version 1)
Quarter: 2024Q2

REPORT INFORMATION
  Report Type: Spontaneous
  Country: US (occurrence: US)
  Receive Date: 20240514
  Receipt Date: 20240514
  Transmission Date: 20240716
  Serious: No
  Sender: FDA-Public Use
  Company Number: US-ANIPHARMA-2024-US-023612

PATIENT
  Age: 59 Year
  Sex: Female
  Weight: 58.97 kg

DRUGS (8)
  1. CORTICOTROPIN [Suspect]
     Active Substance: CORTICOTROPIN
     Indication: Iridocyclitis
     Dosage: INJECTION ONCE A WEEK 1ML
     Route: 058
     Dates: start: 20240326
  2. NORVASC [Concomitant]
     Active Substance: AMLODIPINE BESYLATE
  3. SINGULAIR [Concomitant]
     Active Substance: MONTELUKAST SODIUM
  4. XANAX [Concomitant]
     Active Substance: ALPRAZOLAM
  5. ROSUVASTATIN [Concomitant]
     Active Substance: ROSUVASTATIN
  6. NEXIUM [Concomitant]
     Active Substance: ESOMEPRAZOLE MAGNESIUM
  7. OTEZLA [Concomitant]
     Active Substance: APREMILAST
  8. PROBIOTICS NOS [Concomitant]
     Active Substance: PROBIOTICS NOS

REACTIONS (3)
  - Headache [Not Recovered/Not Resolved]
  - Hot flush [Not Recovered/Not Resolved]
  - Contraindicated product administered [Not Recovered/Not Resolved]

NARRATIVE: CASE EVENT DATE: 20240326
